FAERS Safety Report 5023914-0 (Version None)
Quarter: 2006Q2

REPORT INFORMATION
  Report Type: 
  Country: None (occurrence: None)
  Receive Date: 20060612
  Receipt Date: 20060606
  Transmission Date: 20061013
  Serious: Yes (Hospitalization)
  Sender: FDA-Public Use
  Company Number: US-BOEHRINGER INGELHEIM PHARMACEUTICALS, INC.-2006-BP-06420BP

PATIENT
  Age: 52 Year
  Sex: Male

DRUGS (7)
  1. VIRAMUNE [Suspect]
     Indication: HIV INFECTION
     Route: 048
  2. EMTRIVA [Concomitant]
     Indication: HIV INFECTION
     Dates: start: 20040901
  3. KALETRA [Concomitant]
     Indication: HIV INFECTION
     Dates: start: 20040901
  4. AXID [Concomitant]
     Indication: GASTROOESOPHAGEAL REFLUX DISEASE
  5. ANDROGEL [Concomitant]
     Indication: HORMONE REPLACEMENT THERAPY
  6. BACTRIM DS [Concomitant]
     Indication: ANTIBIOTIC PROPHYLAXIS
  7. NIASPAN [Concomitant]
     Indication: BLOOD CHOLESTEROL INCREASED

REACTIONS (2)
  - MALAISE [None]
  - VIRAL LOAD INCREASED [None]
